FAERS Safety Report 7273439-7 (Version None)
Quarter: 2011Q1

REPORT INFORMATION
  Report Type: 
  Country: None (occurrence: None)
  Receive Date: 20110203
  Receipt Date: 20110131
  Transmission Date: 20110831
  Serious: No
  Sender: FDA-Public Use
  Company Number: US-PFIZER INC-2011022611

PATIENT
  Sex: Female
  Weight: 59.864 kg

DRUGS (2)
  1. LIPITOR [Concomitant]
     Indication: BLOOD CHOLESTEROL INCREASED
     Dosage: 0.5 MG, DAILY
     Route: 048
  2. SPIRONOLACTONE AND HYDROCHLOROTHIAZIDE [Suspect]
     Indication: HYPERTENSION
     Dosage: 12.5/12.5MG, DAILY
     Route: 048
     Dates: start: 20101115

REACTIONS (1)
  - VULVOVAGINAL DRYNESS [None]
